FAERS Safety Report 16394552 (Version 1)
Quarter: 2019Q2

REPORT INFORMATION
  Report Type: Spontaneous
  Country: US (occurrence: US)
  Receive Date: 20190430
  Receipt Date: 20190430
  Transmission Date: 20190711
  Serious: No
  Sender: FDA-Public Use
  Company Number: None

PATIENT
  Age: 60 Year
  Sex: Female

DRUGS (1)
  1. IBRANCE [Suspect]
     Active Substance: PALBOCICLIB
     Dosage: OCCLUSIVE DRESSING TECHNIQUE
     Route: 046
     Dates: start: 20190130

REACTIONS (3)
  - Inflammation [None]
  - Fracture [None]
  - Dyspnoea [None]

NARRATIVE: CASE EVENT DATE: 20190206
